FAERS Safety Report 14151781 (Version 1)
Quarter: 2017Q4

REPORT INFORMATION
  Report Type: Spontaneous
  Country: US (occurrence: None)
  Receive Date: 20171101
  Receipt Date: 20171101
  Transmission Date: 20180321
  Serious: Yes (Hospitalization)
  Sender: FDA-Public Use
  Company Number: None

PATIENT
  Age: 46 Year
  Sex: Female
  Weight: 78.5 kg

DRUGS (1)
  1. CAPECITABINE 50MG TEVA [Suspect]
     Active Substance: CAPECITABINE
     Indication: BREAST CANCER
     Dosage: 2000 MG QAM, 1500 MG QPM 14 DAYS ON, 7 DAYS OFF BY MOUTH
     Route: 048
     Dates: start: 20171018

REACTIONS (1)
  - Arteriospasm coronary [None]

NARRATIVE: CASE EVENT DATE: 20171022
